FAERS Safety Report 17240672 (Version 1)
Quarter: 2020Q1

REPORT INFORMATION
  Report Type: Spontaneous
  Country: US (occurrence: US)
  Receive Date: 20200107
  Receipt Date: 20200107
  Transmission Date: 20200409
  Serious: Yes (Hospitalization, Congenital Anomaly, Other)
  Sender: FDA-Public Use
  Company Number: US-ALEMBIC PHARMACUETICALS LIMITED-2019SCAL001010

PATIENT

DRUGS (6)
  1. NORMAL SALINE [Concomitant]
     Active Substance: SODIUM CHLORIDE
     Indication: PRODUCT USED FOR UNKNOWN INDICATION
     Dosage: 10ML/KG
     Route: 042
  2. CUROSURF [PHOSPHOLIPIDFRACTION, PORCINE LUNG;SODIUM CHLORIDE] [Concomitant]
     Indication: PRODUCT USED FOR UNKNOWN INDICATION
     Dosage: 2.5ML/KG
     Route: 039
  3. AMPICILLIN [Concomitant]
     Active Substance: AMPICILLIN
     Indication: PROPHYLAXIS
     Dosage: 100 MILLIGRAM/KILOGRAM, BID
     Route: 042
  4. ACETAZOLAMIDE. [Suspect]
     Active Substance: ACETAZOLAMIDE
     Indication: PRODUCT USED FOR UNKNOWN INDICATION
     Dosage: UNK
     Route: 064
  5. SODIUM BICARBONATE. [Concomitant]
     Active Substance: SODIUM BICARBONATE
     Indication: PRODUCT USED FOR UNKNOWN INDICATION
     Dosage: 2 MEQ/K/DOSE
     Route: 042
  6. GENTAMICIN. [Concomitant]
     Active Substance: GENTAMICIN
     Indication: PROPHYLAXIS
     Dosage: 4.5 MILLIGRAM/KILOGRAM, QID
     Route: 042

REACTIONS (14)
  - Use of accessory respiratory muscles [Recovered/Resolved]
  - Neonatal respiratory distress [Recovered/Resolved]
  - Apgar score abnormal [Unknown]
  - Cyanosis neonatal [Unknown]
  - Congenital emphysema [Recovered/Resolved]
  - Neonatal tachypnoea [Recovered/Resolved]
  - Neonatal disorder [Unknown]
  - Metabolic acidosis [Recovered/Resolved]
  - Exposure via breast milk [Unknown]
  - Hypotonia neonatal [Unknown]
  - Nervous system disorder [Recovered/Resolved]
  - Hypochloraemia [Recovered/Resolved]
  - Low birth weight baby [Unknown]
  - Foetal exposure during pregnancy [Unknown]
